FAERS Safety Report 6192125-8 (Version None)
Quarter: 2009Q2

REPORT INFORMATION
  Report Type: 
  Country: None (occurrence: None)
  Receive Date: 20090515
  Receipt Date: 20090506
  Transmission Date: 20091009
  Serious: Yes (Other)
  Sender: FDA-Public Use
  Company Number: SK-JNJFOC-20090501042

PATIENT
  Age: 24 Year
  Sex: Male

DRUGS (6)
  1. INVEGA [Suspect]
     Indication: SCHIZOPHRENIA
     Route: 048
  2. HALOPERIDOL [Concomitant]
  3. LUCETAM [Concomitant]
  4. RISPEN [Concomitant]
  5. AKINETON [Concomitant]
  6. NATRII VALPROAS [Concomitant]

REACTIONS (10)
  - ABDOMINAL DISTENSION [None]
  - AMNESIA [None]
  - DISTURBANCE IN ATTENTION [None]
  - EYE SWELLING [None]
  - GYNAECOMASTIA [None]
  - JOINT SWELLING [None]
  - MUSCLE RIGIDITY [None]
  - NIGHTMARE [None]
  - VISION BLURRED [None]
  - WEIGHT INCREASED [None]
